FAERS Safety Report 6186261-X (Version None)
Quarter: 2009Q2

REPORT INFORMATION
  Report Type: 
  Country: None (occurrence: None)
  Receive Date: 20090511
  Receipt Date: 20090508
  Transmission Date: 20091009
  Serious: Yes (Disabling)
  Sender: FDA-Public Use
  Company Number: DE-PFIZER INC-2009167165

PATIENT
  Age: 67 Year

DRUGS (2)
  1. SORTIS [Suspect]
     Indication: HYPERCHOLESTEROLAEMIA
     Dosage: 1/2 OF 20 MG, 1X/DAY
     Route: 048
  2. CUTANUM [Concomitant]
     Indication: HYSTERECTOMY
     Dosage: UNK
     Route: 062

REACTIONS (5)
  - LIP DISORDER [None]
  - LIP DRY [None]
  - MUCOUS MEMBRANE DISORDER [None]
  - TOOTH DEPOSIT [None]
  - WRONG TECHNIQUE IN DRUG USAGE PROCESS [None]
